FAERS Safety Report 17323756 (Version 1)
Quarter: 2020Q1

REPORT INFORMATION
  Report Type: Spontaneous
  Country: US (occurrence: US)
  Receive Date: 20200127
  Receipt Date: 20200127
  Transmission Date: 20200409
  Serious: No
  Sender: FDA-Public Use
  Company Number: US-ASTRAZENECA-2020SE11459

PATIENT
  Age: 536 Day
  Sex: Female

DRUGS (1)
  1. SYNAGIS [Suspect]
     Active Substance: PALIVIZUMAB
     Route: 030
     Dates: start: 201911

REACTIONS (4)
  - Feeling hot [Unknown]
  - Vomiting [Unknown]
  - Depressed mood [Unknown]
  - Discomfort [Unknown]

NARRATIVE: CASE EVENT DATE: 20200120
